FAERS Safety Report 7805491-1 (Version None)
Quarter: 2011Q4

REPORT INFORMATION
  Report Type: 
  Country: None (occurrence: None)
  Receive Date: 20111010
  Receipt Date: 20110930
  Transmission Date: 20120403
  Serious: Yes (Hospitalization, Other)
  Sender: FDA-Public Use
  Company Number: PHEH2008US04164

PATIENT
  Sex: Male
  Weight: 86.168 kg

DRUGS (64)
  1. FOLIC ACID [Concomitant]
  2. CIPROFLOXACIN [Concomitant]
  3. DIFLUCAN [Concomitant]
  4. POTASSIUM PHOSPHATES [Concomitant]
  5. CELEXA [Concomitant]
  6. FOSAMAX [Concomitant]
  7. PRILOSEC [Concomitant]
  8. OXYCONTIN [Concomitant]
  9. PROCHLORPERAZINE [Concomitant]
  10. ACYCLOVIR [Concomitant]
  11. AREDIA [Suspect]
     Dosage: 30 MG, UNK
     Route: 042
  12. CHEMOTHERAPEUTICS NOS [Concomitant]
  13. WELLBUTRIN SR [Concomitant]
  14. KYTRIL [Concomitant]
  15. FE-TINIC FORTE [Concomitant]
  16. FUROSEMIDE [Concomitant]
  17. AMOXICILLIN [Concomitant]
  18. IBUPROFEN [Concomitant]
  19. LUNESTA [Concomitant]
  20. BACTRIM DS [Concomitant]
  21. LYRICA [Concomitant]
  22. AREDIA [Suspect]
     Dosage: 90 MG, QMO
     Route: 042
  23. TRIMETHOBENZAMIDE HCL [Concomitant]
  24. ZITHROMAX [Concomitant]
  25. LORAZEPAM [Concomitant]
  26. DURAGESIC-100 [Concomitant]
  27. AUGMENTIN '125' [Concomitant]
  28. LORTAB [Concomitant]
  29. VELCADE [Concomitant]
  30. VANCOMYCIN [Concomitant]
  31. MOXIFLOXACIN [Concomitant]
  32. VORINOSTAT [Concomitant]
  33. AXID [Concomitant]
  34. NEURONTIN [Concomitant]
  35. REMERON [Concomitant]
  36. OXYCODONE HCL AND ACETAMINOPHEN [Concomitant]
  37. PRINIVIL [Concomitant]
  38. KEFLEX [Concomitant]
  39. BENADRYL ^ACHE^ [Concomitant]
  40. BACTROBAN                               /NET/ [Concomitant]
  41. NEULASTA [Concomitant]
  42. COMPAZINE [Concomitant]
  43. TOBRAMYCIN [Concomitant]
  44. POTASSIUM CHLORIDE [Concomitant]
  45. ALLOPURINOL [Concomitant]
  46. SILVER SULFADIAZINE [Concomitant]
  47. AMBIEN [Concomitant]
  48. FLUCONAZOLE [Concomitant]
  49. DEXAMETHASONE [Concomitant]
  50. MIACALCIN [Concomitant]
  51. TEMAZEPAM [Concomitant]
  52. TOPROL-XL [Concomitant]
  53. FAMVIR                                  /NET/ [Concomitant]
  54. THALIDOMIDE [Concomitant]
  55. MORPHINE [Concomitant]
  56. ACETAMINOPHEN [Concomitant]
  57. ZOMETA [Suspect]
     Dosage: 4 MG, UNK
  58. LEVAQUIN [Concomitant]
  59. VIAGRA [Concomitant]
  60. ANDROGEL [Concomitant]
  61. METHADONE HCL [Concomitant]
  62. TORADOL [Concomitant]
  63. MELPHALAN HYDROCHLORIDE [Concomitant]
  64. AVELOX [Concomitant]

REACTIONS (58)
  - INJURY [None]
  - ANXIETY [None]
  - LUMBAR RADICULOPATHY [None]
  - ARTHROPATHY [None]
  - NEUTROPENIA [None]
  - INCONTINENCE [None]
  - ASTHENIA [None]
  - ABDOMINAL PAIN [None]
  - FALL [None]
  - ANHEDONIA [None]
  - INTERSTITIAL LUNG DISEASE [None]
  - DIARRHOEA [None]
  - WEIGHT DECREASED [None]
  - ABSCESS LIMB [None]
  - H1N1 INFLUENZA [None]
  - BONE DISORDER [None]
  - OSTEOPOROSIS [None]
  - NEUROPATHY PERIPHERAL [None]
  - CONFUSIONAL STATE [None]
  - DECREASED APPETITE [None]
  - UPPER RESPIRATORY TRACT INFECTION [None]
  - CELLULITIS [None]
  - OSTEOMYELITIS CHRONIC [None]
  - MONONEURITIS [None]
  - NERVE ROOT INJURY LUMBAR [None]
  - ANAEMIA [None]
  - GAIT DISTURBANCE [None]
  - ORAL CANDIDIASIS [None]
  - THROMBOCYTOPENIA [None]
  - PNEUMONIA [None]
  - WOUND [None]
  - DENTAL PROSTHESIS USER [None]
  - FATIGUE [None]
  - LIMB DEFORMITY [None]
  - ATELECTASIS [None]
  - PAIN [None]
  - CARDIOMEGALY [None]
  - NEPHROLITHIASIS [None]
  - BACK PAIN [None]
  - PAIN IN EXTREMITY [None]
  - CONSTIPATION [None]
  - HYPERCALCAEMIA [None]
  - RENAL FAILURE ACUTE [None]
  - DISABILITY [None]
  - SPINAL OSTEOARTHRITIS [None]
  - OSTEOPENIA [None]
  - HEPATIC STEATOSIS [None]
  - DEPRESSION [None]
  - LOWER LIMB FRACTURE [None]
  - OSTEONECROSIS OF JAW [None]
  - COMPRESSION FRACTURE [None]
  - HEPATOMEGALY [None]
  - INTERVERTEBRAL DISC PROTRUSION [None]
  - DECUBITUS ULCER [None]
  - CALCULUS URETERIC [None]
  - DYSPNOEA [None]
  - HYPONATRAEMIA [None]
  - SEPSIS [None]
